FAERS Safety Report 9502723 (Version 1)
Quarter: 2013Q1

REPORT INFORMATION
  Report Type: Spontaneous
  Country: US (occurrence: None)
  Receive Date: 20130225
  Receipt Date: 20130225
  Transmission Date: 20140127
  Serious: Yes (Other)
  Sender: FDA-Public Use
  Company Number: 2010-326

PATIENT
  Sex: Male

DRUGS (2)
  1. PRIALT [Suspect]
     Indication: NEUROPATHY PERIPHERAL
     Dates: start: 200902
  2. DILAUDID (HYDROMORPHONE HYDROCHLORIDE) [Suspect]

REACTIONS (4)
  - Suicidal ideation [None]
  - Spinal pain [None]
  - Gait disturbance [None]
  - Pain [None]
